FAERS Safety Report 20667640 (Version 1)
Quarter: 2022Q2

REPORT INFORMATION
  Report Type: Report from Study
  Country: US (occurrence: US)
  Receive Date: 20220404
  Receipt Date: 20220404
  Transmission Date: 20220721
  Serious: Yes (Other)
  Sender: FDA-Public Use
  Company Number: US-ABBVIE-22K-163-4338942-00

PATIENT
  Age: 63 Year
  Sex: Female

DRUGS (1)
  1. RINVOQ [Suspect]
     Active Substance: UPADACITINIB
     Indication: Rheumatoid arthritis
     Route: 048
     Dates: start: 202109

REACTIONS (11)
  - Knee arthroplasty [Unknown]
  - Hyperhidrosis [Unknown]
  - Feeling cold [Unknown]
  - Dyspnoea [Unknown]
  - Oesophageal dilation procedure [Unknown]
  - Hiatus hernia [Unknown]
  - Pain in extremity [Unknown]
  - Mobility decreased [Unknown]
  - Grip strength decreased [Unknown]
  - Loss of personal independence in daily activities [Unknown]
  - Musculoskeletal stiffness [Unknown]

NARRATIVE: CASE EVENT DATE: 20210901
